FAERS Safety Report 8396985-1 (Version None)
Quarter: 2012Q2

REPORT INFORMATION
  Report Type: 
  Country: None (occurrence: None)
  Receive Date: 20120530
  Receipt Date: 20120522
  Transmission Date: 20120825
  Serious: Yes (Disabling)
  Sender: FDA-Public Use
  Company Number: US-BAXTER-2012BAX000944

PATIENT
  Sex: Female
  Weight: 61.29 kg

DRUGS (5)
  1. LEVOTHYROXINE SODIUM [Concomitant]
     Route: 048
  2. CYTOMEL [Concomitant]
     Route: 048
  3. LEXAPRO [Concomitant]
     Route: 048
  4. GAMMAGARD LIQUID [Suspect]
     Route: 042
     Dates: start: 20110601
  5. VALTREX [Concomitant]
     Route: 048

REACTIONS (2)
  - RETINAL VASCULITIS [None]
  - UVEITIS [None]
